FAERS Safety Report 7170276-9 (Version None)
Quarter: 2010Q4

REPORT INFORMATION
  Report Type: 
  Country: None (occurrence: None)
  Receive Date: 20101217
  Receipt Date: 20101206
  Transmission Date: 20110411
  Serious: Yes (Other)
  Sender: FDA-Public Use
  Company Number: JP-PFIZER INC-2010062883

PATIENT
  Age: 45 Year
  Sex: Female
  Weight: 50.7 kg

DRUGS (6)
  1. CELECOXIB [Suspect]
     Indication: SERONEGATIVE ARTHRITIS
     Dosage: 100 MG, 2X/DAY
     Route: 048
     Dates: start: 20100401, end: 20100413
  2. AZULFIDINE [Suspect]
     Indication: SERONEGATIVE ARTHRITIS
     Dosage: 500 MG, UID/ 1X/DAY
     Route: 048
     Dates: start: 20100401, end: 20100413
  3. AZULFIDINE [Suspect]
     Indication: JUVENILE ARTHRITIS
  4. GASTER [Concomitant]
     Indication: GASTRITIS
     Dosage: 20 MG, 1X/DAY
     Dates: start: 20100401, end: 20100413
  5. SELBEX [Concomitant]
     Dosage: 50 MG, 2X/DAY
     Route: 048
     Dates: start: 20100401, end: 20100413
  6. SELBEX [Concomitant]
     Dosage: UNK
     Dates: start: 20100401, end: 20100413

REACTIONS (4)
  - ANAPHYLACTIC SHOCK [None]
  - DRUG ERUPTION [None]
  - LYMPHOMA [None]
  - PYREXIA [None]
